FAERS Safety Report 4395126-5 (Version None)
Quarter: 2004Q3

REPORT INFORMATION
  Report Type: 
  Country: None (occurrence: None)
  Receive Date: 20040706
  Receipt Date: 20040622
  Transmission Date: 20050211
  Serious: Yes (Hospitalization)
  Sender: FDA-Public Use
  Company Number: 2004220623NL

PATIENT
  Age: 66 Year
  Sex: Female

DRUGS (1)
  1. AROMASIN [Suspect]
     Indication: BREAST CANCER
     Dosage: ORAL
     Route: 048
     Dates: start: 20020601, end: 20030401

REACTIONS (4)
  - COUGH [None]
  - CRYPTOGENIC ORGANIZING PNEUMONIA [None]
  - INFLUENZA LIKE ILLNESS [None]
  - PYREXIA [None]
